FAERS Safety Report 21676895 (Version 1)
Quarter: 2022Q4

REPORT INFORMATION
  Report Type: Spontaneous
  Country: FR (occurrence: FR)
  Receive Date: 20221203
  Receipt Date: 20221203
  Transmission Date: 20230112
  Serious: Yes (Other)
  Sender: FDA-Public Use
  Company Number: None

PATIENT
  Age: 46 Year
  Sex: Female
  Weight: 88.5 kg

DRUGS (3)
  1. RISPERIDONE [Suspect]
     Active Substance: RISPERIDONE
     Indication: Intentional overdose
     Dosage: MAX 1 MG X 30, DURATION : 1 DAY
     Dates: start: 20220829, end: 20220829
  2. FLUOXETINE HYDROCHLORIDE [Suspect]
     Active Substance: FLUOXETINE HYDROCHLORIDE
     Indication: Intentional overdose
     Dosage: MAX 20 MG X 42, DURATION : 1 DAY
     Dates: start: 20220829, end: 20220829
  3. BROMAZEPAM [Suspect]
     Active Substance: BROMAZEPAM
     Indication: Intentional overdose
     Dosage: MAX 6MG X 60, DURATION : 1 DAY
     Dates: start: 20220829, end: 20220829

REACTIONS (4)
  - Coma [Recovered/Resolved]
  - Poisoning deliberate [Recovered/Resolved]
  - Electrocardiogram QT prolonged [Recovered/Resolved]
  - Toxicity to various agents [Recovered/Resolved]

NARRATIVE: CASE EVENT DATE: 20220829
